FAERS Safety Report 25578863 (Version 1)
Quarter: 2025Q3

REPORT INFORMATION
  Report Type: Spontaneous
  Country: US (occurrence: US)
  Receive Date: 20250718
  Receipt Date: 20250718
  Transmission Date: 20251021
  Serious: Yes (Other)
  Sender: REGENERON
  Company Number: US-REGENERON PHARMACEUTICALS, INC.-2025-099846

PATIENT
  Sex: Female

DRUGS (5)
  1. EYLEA [Suspect]
     Active Substance: AFLIBERCEPT
     Indication: Ocular stroke
     Route: 031
  2. EYLEA [Suspect]
     Active Substance: AFLIBERCEPT
     Dosage: 2 MG, EVERY 12 WEEKS, INTO RIGHT EYE (FORMULATION: UNKNOWN)
     Route: 031
     Dates: start: 202502, end: 202502
  3. EYLEA [Suspect]
     Active Substance: AFLIBERCEPT
     Dosage: 2 MG, EVERY 12 WEEKS, INTO RIGHT EYE, (FORMULATION: UNKNOWN)
     Route: 031
     Dates: start: 2025
  4. LOTREL [Concomitant]
     Active Substance: AMLODIPINE BESYLATE\BENAZEPRIL HYDROCHLORIDE
     Indication: Hypertension
     Dosage: 5/20 MG, TWICE DAILY (BID)
  5. VITAMIN D NOS [Concomitant]
     Active Substance: CHOLECALCIFEROL\ERGOCALCIFEROL
     Indication: Immune system disorder

REACTIONS (8)
  - Diarrhoea [Recovered/Resolved]
  - Ill-defined disorder [Unknown]
  - Adverse event [Unknown]
  - Drug tolerance [Unknown]
  - Ocular hyperaemia [Recovered/Resolved]
  - Eye pain [Unknown]
  - Vitreous floaters [Unknown]
  - Off label use [Not Recovered/Not Resolved]
